FAERS Safety Report 5262621-6 (Version None)
Quarter: 2007Q1

REPORT INFORMATION
  Report Type: 
  Country: None (occurrence: None)
  Receive Date: 20070307
  Receipt Date: 20070224
  Transmission Date: 20070707
  Serious: Yes (Hospitalization)
  Sender: FDA-Public Use
  Company Number: 863#3#2007-00003

PATIENT
  Age: 83 Year
  Sex: Male

DRUGS (8)
  1. IDROLAX (MACROGOL) [Suspect]
     Indication: CONSTIPATION
     Dosage: 10 G (10 G I IN 1 DAY(S)), ORAL
     Route: 048
     Dates: start: 20061025, end: 20061025
  2. PIPAMPERONE (PIPAMPERONE) [Concomitant]
  3. FELODIPINE [Concomitant]
  4. MOLSIDOMINE (MOLDSIDOMINE) [Concomitant]
  5. DONPEZIL (DONEPEZIL HYDROCHLORIDE) [Concomitant]
  6. CLOPIDOGREL [Concomitant]
  7. MIANSERIN (MIANSERIN HYDROCHLORIDE) [Concomitant]
  8. PERINDOPRIL ERBUMINE [Concomitant]

REACTIONS (7)
  - CYST [None]
  - DEHYDRATION [None]
  - DIARRHOEA [None]
  - HYPOTENSION [None]
  - MALAISE [None]
  - RENAL FAILURE [None]
  - VOMITING [None]
